FAERS Safety Report 8103931-4 (Version None)
Quarter: 2012Q1

REPORT INFORMATION
  Report Type: 
  Country: None (occurrence: None)
  Receive Date: 20120201
  Receipt Date: 20120124
  Transmission Date: 20120608
  Serious: Yes (Disabling, Other)
  Sender: FDA-Public Use
  Company Number: US-BAYER-200836015NA

PATIENT
  Age: 56 Year
  Sex: Male
  Weight: 115.65 kg

DRUGS (34)
  1. MAGNEVIST [Suspect]
     Indication: ANGIOGRAM
  2. OMNISCAN [Suspect]
     Indication: NUCLEAR MAGNETIC RESONANCE IMAGING BRAIN
     Dates: start: 20031111, end: 20031111
  3. SYNTHROID [Concomitant]
  4. SINGULAIR [Concomitant]
  5. PROZAC [Concomitant]
  6. HYDROCHLOROTHIAZIDE [Concomitant]
  7. PROTONIX [Concomitant]
  8. DIOVAN [Concomitant]
  9. AMBIEN [Concomitant]
  10. MAGNEVIST [Suspect]
     Indication: NUCLEAR MAGNETIC RESONANCE IMAGING
     Dosage: 20 ML, ONCE
     Dates: start: 20040420, end: 20040420
  11. ALPRAZOLAM [Concomitant]
  12. PLAVIX [Concomitant]
  13. FUROSEMIDE [Concomitant]
  14. LANTUS [Concomitant]
  15. AGGRENOX [Concomitant]
  16. LIPITOR [Concomitant]
  17. TRICOR [Concomitant]
  18. ACTOS [Concomitant]
  19. ACETYLSALICYLIC ACID SRT [Concomitant]
  20. BIAXIN [Concomitant]
  21. MAGNEVIST [Suspect]
     Dates: start: 20060510, end: 20060510
  22. ZOCOR [Concomitant]
  23. AVANDIA [Concomitant]
  24. CYCLOBENZAPRINE [Concomitant]
  25. CELEBREX [Concomitant]
  26. ADVAIR DISKUS 100/50 [Concomitant]
  27. PREDNISONE TAB [Concomitant]
  28. MULTIHANCE [Suspect]
     Indication: NUCLEAR MAGNETIC RESONANCE IMAGING
     Dates: start: 20070822, end: 20070822
  29. GADOLINIUM IN UNSPECIFIED DRUG [Suspect]
     Indication: NUCLEAR MAGNETIC RESONANCE IMAGING BRAIN
     Dosage: UNK
     Dates: start: 20031105, end: 20031105
  30. AMARYL [Concomitant]
  31. PREVACID [Concomitant]
  32. TRAMADOL HCL [Concomitant]
  33. ZETIA [Concomitant]
  34. BYETTA [Concomitant]

REACTIONS (15)
  - SKIN FIBROSIS [None]
  - PRURITUS GENERALISED [None]
  - ARTHRALGIA [None]
  - NEPHROGENIC SYSTEMIC FIBROSIS [None]
  - SKIN HYPERTROPHY [None]
  - DEPRESSION [None]
  - SENSORY LOSS [None]
  - PAIN [None]
  - MUSCULOSKELETAL STIFFNESS [None]
  - SCAR [None]
  - ASTHENIA [None]
  - SKIN TIGHTNESS [None]
  - GAIT DISTURBANCE [None]
  - SKIN DISCOLOURATION [None]
  - JOINT RANGE OF MOTION DECREASED [None]
